FAERS Safety Report 18470044 (Version 2)
Quarter: 2025Q3

REPORT INFORMATION
  Report Type: Spontaneous
  Country: US (occurrence: US)
  Receive Date: 20201106
  Receipt Date: 20250821
  Transmission Date: 20251021
  Serious: Yes (Other)
  Sender: AUROBINDO
  Company Number: US-MLMSERVICE-20201019-2535312-2

PATIENT
  Age: 49 Year
  Sex: Male

DRUGS (2)
  1. BUPIVACAINE HYDROCHLORIDE [Suspect]
     Active Substance: BUPIVACAINE HYDROCHLORIDE
     Indication: General anaesthesia
     Route: 065
  2. EPINEPHRINE [Suspect]
     Active Substance: EPINEPHRINE
     Indication: General anaesthesia
     Route: 065

REACTIONS (4)
  - Neurological symptom [Recovered/Resolved]
  - Hemiparesis [Recovered/Resolved]
  - Urinary incontinence [Recovered/Resolved]
  - Hypoaesthesia [Recovered/Resolved]
